FAERS Safety Report 8186810-6 (Version None)
Quarter: 2012Q1

REPORT INFORMATION
  Report Type: 
  Country: None (occurrence: None)
  Receive Date: 20120306
  Receipt Date: 20120224
  Transmission Date: 20120608
  Serious: Yes (Death)
  Sender: FDA-Public Use
  Company Number: US-BRISTOL-MYERS SQUIBB COMPANY-16417420

PATIENT
  Age: 57 Year
  Sex: Female

DRUGS (1)
  1. MEGACE [Suspect]

REACTIONS (4)
  - DISEASE COMPLICATION [None]
  - HEPATITIS C [None]
  - WEIGHT DECREASED [None]
  - PRODUCT TASTE ABNORMAL [None]
